FAERS Safety Report 5952639-X (Version None)
Quarter: 2008Q4

REPORT INFORMATION
  Report Type: 
  Country: None (occurrence: None)
  Receive Date: 20081029
  Receipt Date: 20080915
  Transmission Date: 20090506
  Serious: Yes (Other)
  Sender: FDA-Public Use
  Company Number: 174679USA

PATIENT
  Sex: Male

DRUGS (2)
  1. ZOLPIDEM TARTRATE [Suspect]
     Indication: INSOMNIA
     Dosage: (20 MG), ORAL
     Route: 048
  2. DULOXETINE HYDROCHLORIDE [Concomitant]

REACTIONS (2)
  - BURNS THIRD DEGREE [None]
  - SOMNAMBULISM [None]
